FAERS Safety Report 6686196-X (Version None)
Quarter: 2010Q2

REPORT INFORMATION
  Report Type: 
  Country: None (occurrence: None)
  Receive Date: 20100415
  Receipt Date: 20100415
  Transmission Date: 20101027
  Serious: No
  Sender: FDA-Public Use
  Company Number: None

PATIENT
  Sex: Female
  Weight: 2.86 kg

DRUGS (1)
  1. GENTAK [Suspect]
     Indication: PROPHYLAXIS
     Dosage: 1 ONCE OPHTHALMIC
     Route: 047
     Dates: start: 20100106, end: 20100106

REACTIONS (2)
  - ERYTHEMA [None]
  - EYE SWELLING [None]
